FAERS Safety Report 8244734-X (Version None)
Quarter: 2012Q1

REPORT INFORMATION
  Report Type: 
  Country: None (occurrence: None)
  Receive Date: 20120329
  Receipt Date: 20110302
  Transmission Date: 20120608
  Serious: No
  Sender: FDA-Public Use
  Company Number: US-MYLANLABS-2011S1004279

PATIENT
  Sex: Male
  Weight: 70.31 kg

DRUGS (12)
  1. FENTANYL-100 [Suspect]
     Indication: NEURALGIA
     Dosage: CHANGED Q. 72 HOURS.
     Route: 062
     Dates: start: 20100801
  2. FENTANYL-100 [Suspect]
     Dosage: CHANGED Q. 72 HOURS.
     Route: 062
     Dates: start: 20090101, end: 20100501
  3. FENTANYL-100 [Suspect]
     Dosage: CHANGED Q. 72 HOURS.
     Route: 062
     Dates: start: 20100501, end: 20100801
  4. FUROSEMIDE [Concomitant]
     Indication: FLUID RETENTION
     Dates: start: 20040101
  5. FENTANYL-100 [Suspect]
     Indication: MUSCULOSKELETAL PAIN
     Dosage: CHANGED Q. 72 HOURS.
     Route: 062
     Dates: start: 20100801
  6. ASPIRIN [Concomitant]
     Dates: start: 20040101
  7. CARVEDILOL [Concomitant]
     Indication: PROPHYLAXIS
     Dates: start: 20040101
  8. ZETIA [Concomitant]
     Indication: BLOOD CHOLESTEROL INCREASED
     Dates: start: 20040101
  9. LOSARTAN POTASSIUM [Concomitant]
     Indication: BLOOD PRESSURE INCREASED
     Dates: start: 20040101
  10. FENTANYL-100 [Suspect]
     Dosage: CHANGED Q. 72 HOURS.
     Route: 062
     Dates: start: 20100501, end: 20100801
  11. FENTANYL-100 [Suspect]
     Dosage: CHANGED Q. 72 HOURS.
     Route: 062
     Dates: start: 20090101, end: 20100501
  12. LYRICA [Concomitant]
     Indication: NEURALGIA
     Dates: start: 20070101

REACTIONS (4)
  - SOMNOLENCE [None]
  - DRUG EFFECT DECREASED [None]
  - NEURALGIA [None]
  - DRUG WITHDRAWAL SYNDROME [None]
